FAERS Safety Report 19970569 (Version 2)
Quarter: 2021Q4

REPORT INFORMATION
  Report Type: Spontaneous
  Country: JP (occurrence: JP)
  Receive Date: 20211019
  Receipt Date: 20211105
  Transmission Date: 20220303
  Serious: Yes (Hospitalization)
  Sender: FDA-Public Use
  Company Number: JP-JNJFOC-20211017582

PATIENT
  Age: 80 Year
  Sex: Female
  Weight: 42 kg

DRUGS (1)
  1. OPSUMIT [Suspect]
     Active Substance: MACITENTAN
     Indication: Portopulmonary hypertension
     Route: 048
     Dates: start: 20210730, end: 20211001

REACTIONS (2)
  - Pancytopenia [Recovered/Resolved]
  - Cardiac failure [Recovering/Resolving]

NARRATIVE: CASE EVENT DATE: 20210930
